FAERS Safety Report 26008553 (Version 2)
Quarter: 2025Q4

REPORT INFORMATION
  Report Type: Spontaneous
  Country: US (occurrence: US)
  Receive Date: 20251106
  Receipt Date: 20251217
  Transmission Date: 20260118
  Serious: No
  Sender: SANDOZ
  Company Number: US-SANDOZ-SDZ2025US082535

PATIENT
  Sex: Female

DRUGS (2)
  1. COMBIPATCH [Suspect]
     Active Substance: ESTRADIOL\NORETHINDRONE ACETATE
     Indication: Menopausal symptoms
     Dosage: 0.05/0.14 MG
     Route: 062
     Dates: start: 20251027
  2. COMBIPATCH [Suspect]
     Active Substance: ESTRADIOL\NORETHINDRONE ACETATE
     Indication: Hot flush

REACTIONS (7)
  - Application site pruritus [Not Recovered/Not Resolved]
  - Product ineffective [Not Recovered/Not Resolved]
  - Adhesive tape use [Recovered/Resolved]
  - Wrong technique in product usage process [Recovered/Resolved]
  - Device use error [Recovered/Resolved]
  - Product adhesion issue [Not Recovered/Not Resolved]
  - Device issue [Recovered/Resolved]

NARRATIVE: CASE EVENT DATE: 20251027
